FAERS Safety Report 13062921 (Version 1)
Quarter: 2016Q4

REPORT INFORMATION
  Report Type: Report from Study
  Country: JP (occurrence: JP)
  Receive Date: 20161227
  Receipt Date: 20161227
  Transmission Date: 20170207
  Serious: Yes (Other)
  Sender: FDA-Public Use
  Company Number: JP-BRISTOL-MYERS SQUIBB COMPANY-BMS-2016-053003

PATIENT
  Age: 59 Year
  Sex: Female

DRUGS (5)
  1. NIVOLUMAB [Suspect]
     Active Substance: NIVOLUMAB
     Indication: PRODUCT USED FOR UNKNOWN INDICATION
     Dosage: 2 MG/KG UNK
     Route: 041
     Dates: start: 20160428, end: 20160428
  2. NIVOLUMAB [Suspect]
     Active Substance: NIVOLUMAB
     Indication: PRODUCT USED FOR UNKNOWN INDICATION
     Dosage: 2 MG/KG UNK
     Route: 041
     Dates: start: 20160519, end: 20160519
  3. YERVOY [Suspect]
     Active Substance: IPILIMUMAB
     Indication: MALIGNANT MELANOMA
     Dosage: 200 MG, UNK
     Route: 041
     Dates: start: 20160805, end: 20161011
  4. NIVOLUMAB [Suspect]
     Active Substance: NIVOLUMAB
     Indication: MALIGNANT MELANOMA
     Dosage: 2 MG/KG UNK
     Route: 065
     Dates: start: 20160317, end: 20160317
  5. NIVOLUMAB [Suspect]
     Active Substance: NIVOLUMAB
     Indication: PRODUCT USED FOR UNKNOWN INDICATION
     Dosage: 2 MG/KG UNK
     Route: 041
     Dates: start: 20160407, end: 20160407

REACTIONS (4)
  - Blood alkaline phosphatase increased [Recovering/Resolving]
  - Dermatitis [Recovering/Resolving]
  - Pruritus [Recovering/Resolving]
  - Cerebral haemorrhage [Recovering/Resolving]

NARRATIVE: CASE EVENT DATE: 20160407
